FAERS Safety Report 10023690 (Version 1)
Quarter: 2014Q1

REPORT INFORMATION
  Report Type: Spontaneous
  Country: US (occurrence: None)
  Receive Date: 20140304
  Receipt Date: 20140304
  Transmission Date: 20141002
  Serious: Yes (Hospitalization)
  Sender: FDA-Public Use
  Company Number: RB-59439-2013

PATIENT
  Sex: Female

DRUGS (1)
  1. BUPRENORPHINE W/ NALOXONE [Suspect]
     Indication: DRUG DEPENDENCE
     Dates: start: 20130911

REACTIONS (1)
  - Rash generalised [None]
